FAERS Safety Report 9216825 (Version 1)
Quarter: 2013Q2

REPORT INFORMATION
  Report Type: Spontaneous
  Country: US (occurrence: US)
  Receive Date: 20130408
  Receipt Date: 20130408
  Transmission Date: 20140414
  Serious: Yes (Death)
  Sender: FDA-Public Use
  Company Number: US-PFIZER INC-2013106906

PATIENT
  Age: 61 Year
  Sex: Male

DRUGS (3)
  1. XALKORI [Suspect]
     Dosage: 250 MG, 2X/DAY (2 CAPSULES)
     Route: 048
  2. PAXIL [Concomitant]
     Dosage: 40 MG, UNK
  3. LORAZEPAM [Concomitant]
     Dosage: 2 MG, UNK

REACTIONS (1)
  - Death [Fatal]
